FAERS Safety Report 12375772 (Version 1)
Quarter: 2016Q2

REPORT INFORMATION
  Report Type: Spontaneous
  Country: US (occurrence: US)
  Receive Date: 20160517
  Receipt Date: 20160517
  Transmission Date: 20160815
  Serious: No
  Sender: FDA-Public Use
  Company Number: US-CONCORDIA PHARMACEUTICALS INC.-CO-ZO-US-2015-041

PATIENT
  Sex: Female

DRUGS (2)
  1. VIMPAT [Concomitant]
     Active Substance: LACOSAMIDE
     Indication: PRODUCT USED FOR UNKNOWN INDICATION
     Dosage: UNKNOWN
  2. ZONEGRAN [Suspect]
     Active Substance: ZONISAMIDE
     Indication: SEIZURE
     Dosage: UNKNOWN
     Route: 048
     Dates: start: 2012, end: 20150223

REACTIONS (19)
  - Muscular weakness [Unknown]
  - Pollakiuria [Not Recovered/Not Resolved]
  - Agitation [Unknown]
  - Depression [Unknown]
  - Bradyphrenia [Unknown]
  - Bladder pain [Not Recovered/Not Resolved]
  - Gastritis [Recovered/Resolved]
  - Gingival bleeding [Unknown]
  - Gingival recession [Unknown]
  - Constipation [Unknown]
  - Insomnia [Unknown]
  - Memory impairment [Unknown]
  - Dry skin [Unknown]
  - Nervousness [Unknown]
  - Confusional state [Unknown]
  - Micturition urgency [Unknown]
  - Fall [Unknown]
  - Alopecia [Unknown]
  - Irritability [Unknown]

NARRATIVE: CASE EVENT DATE: 2012
